FAERS Safety Report 9436580 (Version 1)
Quarter: 2013Q3

REPORT INFORMATION
  Report Type: Spontaneous
  Country: US (occurrence: US)
  Receive Date: 20130802
  Receipt Date: 20130802
  Transmission Date: 20140515
  Serious: No
  Sender: FDA-Public Use
  Company Number: US-OPTIMER-20130208

PATIENT
  Age: 80 Year
  Sex: Male

DRUGS (2)
  1. FIDAXOMICIN [Suspect]
     Indication: CLOSTRIDIUM DIFFICILE COLITIS
     Dosage: UNK
     Dates: start: 20121011, end: 20121019
  2. CEFTAROLINE [Concomitant]
     Dosage: UNK
     Dates: start: 20121010, end: 20121019

REACTIONS (1)
  - Blood creatinine increased [Unknown]
